FAERS Safety Report 22004766 (Version 2)
Quarter: 2023Q1

REPORT INFORMATION
  Report Type: Spontaneous
  Country: JP (occurrence: None)
  Receive Date: 20230217
  Receipt Date: 20230224
  Transmission Date: 20230418
  Serious: Yes (Life-Threatening, Other)
  Sender: FDA-Public Use
  Company Number: 2023A008409

PATIENT
  Age: 73 Year
  Sex: Male
  Weight: 81 kg

DRUGS (9)
  1. LYNPARZA [Suspect]
     Active Substance: OLAPARIB
     Indication: Hormone-refractory prostate cancer
     Dosage: DOSE UNKNOWN
     Route: 048
     Dates: start: 202201, end: 20230201
  2. CIFENLINE SUCCINATE [Concomitant]
     Active Substance: CIFENLINE SUCCINATE
     Indication: Atrial fibrillation
     Route: 048
  3. POLAPREZINC [Concomitant]
     Active Substance: POLAPREZINC
     Indication: Gastric ulcer
     Route: 048
  4. PREGABALIN [Concomitant]
     Active Substance: PREGABALIN
     Indication: Neuropathy peripheral
     Route: 048
  5. DULOXETINE [Concomitant]
     Active Substance: DULOXETINE
     Indication: Neuropathy peripheral
     Route: 048
  6. MAGNESIUM OXIDE [Concomitant]
     Active Substance: MAGNESIUM OXIDE
     Indication: Gastric ulcer
     Route: 048
  7. CALCIUM CARBONATE\CHOLECALCIFEROL\MAGNESIUM CARBONATE [Concomitant]
     Active Substance: CALCIUM CARBONATE\CHOLECALCIFEROL\MAGNESIUM CARBONATE
     Route: 048
  8. DEGARELIX [Concomitant]
     Active Substance: DEGARELIX
     Indication: Hormone-refractory prostate cancer
     Route: 058
  9. DENOSUMAB [Concomitant]
     Active Substance: DENOSUMAB
     Indication: Hormone-refractory prostate cancer
     Route: 058

REACTIONS (2)
  - Pulmonary embolism [Recovering/Resolving]
  - Malignant neoplasm progression [Unknown]

NARRATIVE: CASE EVENT DATE: 20220922
